FAERS Safety Report 5530621-4 (Version None)
Quarter: 2007Q4

REPORT INFORMATION
  Report Type: 
  Country: None (occurrence: None)
  Receive Date: 20071130
  Receipt Date: 20071127
  Transmission Date: 20080405
  Serious: Yes (Hospitalization)
  Sender: FDA-Public Use
  Company Number: A0696081A

PATIENT
  Age: 49 Year
  Sex: Female

DRUGS (21)
  1. ADVAIR DISKUS 100/50 [Suspect]
     Indication: CHRONIC OBSTRUCTIVE PULMONARY DISEASE
     Dosage: 2PUFF TWICE PER DAY
     Route: 055
  2. ZYRTEC [Concomitant]
  3. SINGULAIR [Concomitant]
  4. NORTRIPTYLINE HCL [Concomitant]
  5. JANUVIA [Concomitant]
  6. NEXIUM [Concomitant]
  7. TOPAMAX [Concomitant]
  8. TEMAZEPAM [Concomitant]
  9. LORTAB [Concomitant]
  10. INDOMETHACIN [Concomitant]
  11. VITAMIN B-12 [Concomitant]
  12. VITAMIN B-12 [Concomitant]
     Route: 060
  13. MAGNESIUM SULFATE [Concomitant]
  14. UNSPECIFIED MEDICATION [Concomitant]
  15. DELSYM [Concomitant]
  16. CYMBALTA [Concomitant]
  17. CLONAZEPAM [Concomitant]
  18. VITAMIN K [Concomitant]
  19. UNKNOWN NEBULIZER MEDICATION [Concomitant]
  20. MUCINEX [Concomitant]
  21. FLONASE [Concomitant]

REACTIONS (3)
  - BIOPSY LUNG [None]
  - DRUG INEFFECTIVE [None]
  - PNEUMONIA [None]
